FAERS Safety Report 26008853 (Version 1)
Quarter: 2025Q4

REPORT INFORMATION
  Report Type: Report from Study
  Country: CA (occurrence: CA)
  Receive Date: 20251106
  Receipt Date: 20251106
  Transmission Date: 20260118
  Serious: Yes (Death)
  Sender: ABBVIE
  Company Number: CA-ABBVIE-6536200

PATIENT
  Age: 94 Year
  Sex: Male

DRUGS (5)
  1. LUPRON [Suspect]
     Active Substance: LEUPROLIDE ACETATE
     Indication: Prostate cancer
     Dosage: FORM STRENGTH: 30 MG
     Route: 065
     Dates: start: 20170912
  2. RAMIPRIL [Concomitant]
     Active Substance: RAMIPRIL
     Indication: Product used for unknown indication
  3. ROSUVASTATIN [Concomitant]
     Active Substance: ROSUVASTATIN
     Indication: Product used for unknown indication
  4. EYLEA [Concomitant]
     Active Substance: AFLIBERCEPT
     Indication: Product used for unknown indication
     Dosage: DOSAGE: 40 MG/ML VIAL INJECTION
  5. BICALUTAMIDE [Concomitant]
     Active Substance: BICALUTAMIDE
     Indication: Product used for unknown indication

REACTIONS (1)
  - Death [Fatal]

NARRATIVE: CASE EVENT DATE: 20250101
